FAERS Safety Report 4486111-3 (Version None)
Quarter: 2004Q4

REPORT INFORMATION
  Report Type: 
  Country: None (occurrence: None)
  Receive Date: 20041021
  Receipt Date: 20040930
  Transmission Date: 20050328
  Serious: Yes (Hospitalization)
  Sender: FDA-Public Use
  Company Number: F01200403062

PATIENT
  Age: 57 Year
  Sex: Female

DRUGS (1)
  1. ELOXATINE - (OXALIPLATIN) - SOLUTION - 170 MG [Suspect]
     Indication: COLORECTAL CANCER METASTATIC
     Dosage: INTRAVENOUS NOS
     Route: 042
     Dates: start: 20040309, end: 20040309

REACTIONS (6)
  - ASTHENIA [None]
  - DYSPNOEA [None]
  - ERYTHEMA [None]
  - LARYNGOSPASM [None]
  - MUSCLE CRAMP [None]
  - URTICARIA GENERALISED [None]
